FAERS Safety Report 9867392 (Version 1)
Quarter: 2014Q1

REPORT INFORMATION
  Report Type: Spontaneous
  Country: FR (occurrence: FR)
  Receive Date: 20140204
  Receipt Date: 20140204
  Transmission Date: 20141002
  Serious: Yes (Hospitalization)
  Sender: FDA-Public Use
  Company Number: FR-ASTRAZENECA-2014SE07408

PATIENT
  Age: 20167 Day
  Sex: Female

DRUGS (11)
  1. INEXIUM [Suspect]
     Route: 048
     Dates: start: 20130507, end: 20130709
  2. RISPERDAL [Suspect]
     Route: 048
     Dates: end: 20130507
  3. RISPERDAL [Suspect]
     Route: 048
     Dates: start: 20130507, end: 201307
  4. RISPERDAL [Suspect]
     Route: 048
     Dates: start: 201307
  5. PERINDOPRIL [Concomitant]
  6. ZOLPIDEM [Concomitant]
  7. GARDENAL [Concomitant]
  8. ATARAX [Concomitant]
  9. METFORMINE [Concomitant]
  10. DOMPERIDONE [Concomitant]
  11. CITALOPRAM [Concomitant]

REACTIONS (8)
  - Polydipsia psychogenic [Unknown]
  - Hyponatraemia [Recovered/Resolved]
  - Frontotemporal dementia [Unknown]
  - Extrapyramidal disorder [Unknown]
  - Gamma-glutamyltransferase increased [Unknown]
  - Hypochloraemia [Unknown]
  - Blood creatinine decreased [Unknown]
  - Blood osmolarity decreased [Unknown]
